FAERS Safety Report 25446580 (Version 1)
Quarter: 2025Q2

REPORT INFORMATION
  Report Type: Spontaneous
  Country: DE (occurrence: DE)
  Receive Date: 20250617
  Receipt Date: 20250617
  Transmission Date: 20250716
  Serious: Yes (Hospitalization)
  Sender: MYLAN
  Company Number: DE-TEVA-VS-3337645

PATIENT
  Age: 77 Year
  Sex: Female

DRUGS (8)
  1. METOPROLOL [Interacting]
     Active Substance: METOPROLOL
     Indication: Heart rate normal
  2. METOPROLOL [Interacting]
     Active Substance: METOPROLOL
     Route: 065
  3. METOPROLOL [Interacting]
     Active Substance: METOPROLOL
     Route: 065
  4. METOPROLOL [Interacting]
     Active Substance: METOPROLOL
  5. ECHINACEA [Interacting]
     Active Substance: ECHINACEA, UNSPECIFIED
     Indication: Nasopharyngitis
  6. ECHINACEA [Interacting]
     Active Substance: ECHINACEA, UNSPECIFIED
     Route: 065
  7. ECHINACEA [Interacting]
     Active Substance: ECHINACEA, UNSPECIFIED
     Route: 065
  8. ECHINACEA [Interacting]
     Active Substance: ECHINACEA, UNSPECIFIED

REACTIONS (2)
  - Atrial fibrillation [Unknown]
  - Drug interaction [Unknown]
